FAERS Safety Report 22353607 (Version 1)
Quarter: 2023Q2

REPORT INFORMATION
  Report Type: Spontaneous
  Country: US (occurrence: US)
  Receive Date: 20230523
  Receipt Date: 20230523
  Transmission Date: 20230721
  Serious: No
  Sender: FDA-Public Use
  Company Number: US-GLAXOSMITHKLINE-USCH2023AMR023643

PATIENT
  Sex: Female

DRUGS (5)
  1. ADVIL [Suspect]
     Active Substance: IBUPROFEN
     Indication: Product used for unknown indication
     Dosage: UNK
  2. TYLENOL [Suspect]
     Active Substance: ACETAMINOPHEN
     Indication: Product used for unknown indication
     Dosage: UNK
  3. XALKORI [Suspect]
     Active Substance: CRIZOTINIB
     Indication: Product used for unknown indication
     Dosage: 2 DF, QD
     Dates: start: 20230314, end: 20230323
  4. XALKORI [Suspect]
     Active Substance: CRIZOTINIB
     Dosage: 1 UNK
     Dates: start: 20230330
  5. TRAMADOL [Suspect]
     Active Substance: TRAMADOL
     Indication: Pain
     Dosage: UNK

REACTIONS (5)
  - Vomiting [Unknown]
  - Illness [Unknown]
  - Throat irritation [Unknown]
  - Nasal discomfort [Unknown]
  - Dyspnoea [Unknown]
